FAERS Safety Report 16608910 (Version 1)
Quarter: 2019Q3

REPORT INFORMATION
  Report Type: Spontaneous
  Country: GR (occurrence: GR)
  Receive Date: 20190722
  Receipt Date: 20190722
  Transmission Date: 20191004
  Serious: Yes (Death, Life-Threatening, Hospitalization, Other)
  Sender: FDA-Public Use
  Company Number: GR-MYLANLABS-2019M1012680

PATIENT
  Age: 69 Year
  Sex: Female

DRUGS (1)
  1. KLARICID [Suspect]
     Active Substance: CLARITHROMYCIN
     Indication: RESPIRATORY TRACT INFECTION
     Dosage: UNK

REACTIONS (5)
  - Bladder dysfunction [Unknown]
  - Mechanical ventilation [Unknown]
  - Muscular weakness [Unknown]
  - Diarrhoea [Unknown]
  - Death [Fatal]
